FAERS Safety Report 16981128 (Version 1)
Quarter: 2019Q4

REPORT INFORMATION
  Report Type: Spontaneous
  Country: GB (occurrence: GB)
  Receive Date: 20191031
  Receipt Date: 20191031
  Transmission Date: 20200122
  Serious: Yes (Hospitalization, Other)
  Sender: FDA-Public Use
  Company Number: GB-ASCEND THERAPEUTICS US, LLC-2076308

PATIENT
  Age: 56 Year
  Sex: Female

DRUGS (2)
  1. BINOSTO [Suspect]
     Active Substance: ALENDRONATE SODIUM
     Indication: CHRONIC KIDNEY DISEASE
  2. ALENDRONATE SODIUM. [Suspect]
     Active Substance: ALENDRONATE SODIUM

REACTIONS (3)
  - Stress fracture [Unknown]
  - Product used for unknown indication [None]
  - Femur fracture [Unknown]
